FAERS Safety Report 9822358 (Version 1)
Quarter: 2014Q1

REPORT INFORMATION
  Report Type: Spontaneous
  Country: US (occurrence: US)
  Receive Date: 20140116
  Receipt Date: 20140116
  Transmission Date: 20141002
  Serious: No
  Sender: FDA-Public Use
  Company Number: PHEH2014US000728

PATIENT
  Sex: Male

DRUGS (7)
  1. DIOVAN [Suspect]
     Indication: HYPERTENSION
     Dosage: 160 MG, QD
     Route: 048
  2. TASIGNA [Suspect]
     Indication: NEOPLASM MALIGNANT
     Dosage: 150 MG, UNK
     Route: 048
  3. FAMODITINE [Concomitant]
     Dosage: UNK UKN, UNK
  4. VITAMIN D [Concomitant]
     Dosage: UNK UKN, UNK
  5. CLOPIDOGREL [Concomitant]
     Dosage: UNK UKN, UNK
  6. AMLODIPINE [Concomitant]
     Dosage: UNK UKN, UNK
  7. PRAVASTATIN [Concomitant]
     Dosage: UNK UKN, UNK

REACTIONS (5)
  - Road traffic accident [Unknown]
  - Nasopharyngitis [Recovering/Resolving]
  - Sneezing [Unknown]
  - Headache [Unknown]
  - Sinusitis [Unknown]
